FAERS Safety Report 6140479-0 (Version None)
Quarter: 2009Q1

REPORT INFORMATION
  Report Type: 
  Country: None (occurrence: None)
  Receive Date: 20090331
  Receipt Date: 20090317
  Transmission Date: 20090719
  Serious: Yes (Death, Other)
  Sender: FDA-Public Use
  Company Number: 2009S1004738

PATIENT
  Age: 43 Year
  Sex: Female

DRUGS (3)
  1. FENTANYL TRANSDERMAL SYSTEM [Suspect]
     Dosage: 50 UG; EVERY HOUR; TRANSDERMAL
     Route: 062
  2. PROPOXYPHENE HCL [Suspect]
  3. CYCLOBENZAPRINE HCL [Suspect]

REACTIONS (2)
  - OVERDOSE [None]
  - SELF-MEDICATION [None]
